FAERS Safety Report 9372616 (Version 1)
Quarter: 2013Q2

REPORT INFORMATION
  Report Type: Report from Study
  Country: US (occurrence: US)
  Receive Date: 20130627
  Receipt Date: 20130627
  Transmission Date: 20140414
  Serious: Yes (Other)
  Sender: FDA-Public Use
  Company Number: US-MYLANLABS-2013S1002856

PATIENT
  Age: 58 Year
  Sex: Male

DRUGS (7)
  1. CLOZAPINE TABLETS [Suspect]
     Indication: SCHIZOPHRENIA, RESIDUAL TYPE
  2. CLOZAPINE TABLETS [Suspect]
     Indication: SCHIZOPHRENIA, RESIDUAL TYPE
  3. AMBIEN [Concomitant]
  4. NITRO PATCH [Concomitant]
     Route: 062
  5. LACTULOSE AL [Concomitant]
  6. HYDROCODONE BITARTRATE AND IBUPROFEN [Concomitant]
  7. KLONOPIN [Concomitant]
     Dosage: PRN
     Route: 048

REACTIONS (2)
  - Granulocytopenia [Recovered/Resolved]
  - Leukopenia [Recovered/Resolved]
